FAERS Safety Report 6430282-6 (Version None)
Quarter: 2009Q4

REPORT INFORMATION
  Report Type: 
  Country: None (occurrence: None)
  Receive Date: 20091105
  Receipt Date: 20091105
  Transmission Date: 20100525
  Serious: Yes (Death)
  Sender: FDA-Public Use
  Company Number: None

PATIENT
  Sex: Female

DRUGS (1)
  1. CHANTIX [Suspect]

REACTIONS (5)
  - ALCOHOL USE [None]
  - BINGE EATING [None]
  - COMPLETED SUICIDE [None]
  - DEPRESSION [None]
  - HYPERPHAGIA [None]
